FAERS Safety Report 15547787 (Version 1)
Quarter: 2018Q4

REPORT INFORMATION
  Report Type: Spontaneous
  Country: US (occurrence: US)
  Receive Date: 20181024
  Receipt Date: 20181024
  Transmission Date: 20190205
  Serious: Yes (Hospitalization, Disabling, Other)
  Sender: FDA-Public Use
  Company Number: None

PATIENT
  Age: 52 Year
  Sex: Female
  Weight: 78.75 kg

DRUGS (6)
  1. AMBIEN [Suspect]
     Active Substance: ZOLPIDEM TARTRATE
  2. NORCO [Suspect]
     Active Substance: ACETAMINOPHEN\HYDROCODONE BITARTRATE
  3. ELIQUIS [Concomitant]
     Active Substance: APIXABAN
  4. DOTERRA LIVELONG VITALITY CELLULAR CAPSULES AND FOOD NUTRIENTS [Concomitant]
  5. ESSENTIAL OILS. [Concomitant]
     Active Substance: ESSENTIAL OILS
  6. XARELTO [Suspect]
     Active Substance: RIVAROXABAN
     Indication: PULMONARY EMBOLISM
     Dosage: ?          QUANTITY:1 TABLET(S);?
     Route: 048
     Dates: start: 20150129, end: 20180919

REACTIONS (9)
  - Disturbance in attention [None]
  - Product use complaint [None]
  - Insomnia [None]
  - Drug interaction [None]
  - Limb injury [None]
  - Headache [None]
  - Amnesia [None]
  - Fatigue [None]
  - Pain [None]

NARRATIVE: CASE EVENT DATE: 20180912
